FAERS Safety Report 9698043 (Version 3)
Quarter: 2014Q2

REPORT INFORMATION
  Report Type: Report from Study
  Country: US (occurrence: US)
  Receive Date: 20131120
  Receipt Date: 20140613
  Transmission Date: 20141212
  Serious: Yes (Other)
  Sender: FDA-Public Use
  Company Number: PHEH2013US005893

PATIENT
  Age: 56 Year
  Sex: Female
  Weight: 64.5 kg

DRUGS (50)
  1. NEORAL [Suspect]
     Indication: RENAL AND PANCREAS TRANSPLANT
     Dosage: 125 MG, 75 MG IN THE MORNING AND 50 MG AT NIGHT
     Route: 048
     Dates: start: 19960109, end: 20131121
  2. CIPROFLOXACIN [Interacting]
     Indication: INFECTION
     Dosage: UNK UKN, UNK
  3. MYFORTIC [Concomitant]
     Indication: PROPHYLAXIS AGAINST TRANSPLANT REJECTION
     Dosage: 2 DF, BID, AT MEAL TIME
     Route: 048
  4. MYFORTIC [Concomitant]
     Indication: IMMUNOSUPPRESSION
  5. DELTASONE [Concomitant]
     Indication: IMMUNOSUPPRESSION
     Dosage: UKN, 15 MG (3 TABS IN THE AM), 10 MG (02 TABS IN THE PM)
     Route: 048
     Dates: start: 20121009
  6. DELTASONE [Concomitant]
     Indication: PROPHYLAXIS AGAINST TRANSPLANT REJECTION
     Dosage: UKN, 10 MG (02 TABS TWICE DAILY)
     Route: 048
  7. DELTASONE [Concomitant]
     Dosage: UKN, 15 MG (3 TABS ONCE DAILY IN THE AM)
     Route: 048
  8. DELTASONE [Concomitant]
     Dosage: UKN, 10 MG (02 TABS ONCE DAILY IN THE AM AND CONTINUE UNTILL FOLLOW UP)
     Route: 048
  9. DELTASONE [Concomitant]
     Dosage: 15 MG, BID
     Route: 048
  10. DELTASONE [Concomitant]
     Dosage: 1 DF, QD
     Route: 048
     Dates: end: 20131124
  11. TACROLIMUS [Concomitant]
     Indication: PROPHYLAXIS AGAINST TRANSPLANT REJECTION
     Dosage: 1 DF, BID
     Route: 048
  12. TACROLIMUS [Concomitant]
     Indication: IMMUNOSUPPRESSION
  13. ZOVIRAX [Concomitant]
     Indication: ANTIVIRAL PROPHYLAXIS
     Dosage: 1 DF, QID, TAKE FOR 03 MONTH AFTER TRANSPLANT
     Route: 048
     Dates: start: 20131124
  14. ZOVIRAX [Concomitant]
     Dosage: 1 DF, TID
     Route: 048
     Dates: end: 20131211
  15. MYCELEX [Concomitant]
     Indication: CANDIDA INFECTION
     Dosage: 1 DF, BID, TROCHE, FOR 03 MONTHS, DO NO EAT OR DRINK FOR 15 MIN AFTER USE
     Route: 048
  16. PENTAM [Concomitant]
     Indication: INFECTION PROPHYLAXIS
     Dosage: 300 MG, NEB SOLUION BY NEBULIZER EVERY MONTH, TAKE 06 MONTH AFTER TRANSPLANT
     Route: 055
  17. ALBUTEROL [Concomitant]
     Indication: DYSPNOEA
     Dosage: 3 ML, 0.083% NEB SOLUTION BY NEBULIZER ONCE 30 MIN PRIOR TO PENTAMIDINE
     Route: 055
  18. NIFEDIPINE [Concomitant]
     Indication: HYPOTENSION
     Dosage: 1 DF, QD, IN THE EVENING
     Route: 048
  19. MULTI VITAMIN + MINERAL [Concomitant]
     Indication: SUPPLEMENTATION THERAPY
     Dosage: 1 DF, QD, AT NOON
     Route: 048
  20. SENOKOT-S [Concomitant]
     Indication: CONSTIPATION PROPHYLAXIS
     Dosage: 2 DF, BID
     Route: 048
  21. CALCIUM [Concomitant]
     Indication: BONE DISORDER
     Dosage: 1 DF, BID
     Route: 048
  22. VITAMIN D//COLECALCIFEROL [Concomitant]
     Indication: BONE DISORDER
     Dosage: 3000 U, QD, IN MORNING
     Route: 048
     Dates: end: 20131124
  23. NORMODYNE [Concomitant]
     Dosage: TAKE 100MG (1/2 TAB IN THE AM AND NOON), 300 MG (1.5 TABS IN THE PM AND AT BED TIME)
     Route: 048
  24. NORMODYNE [Concomitant]
     Dosage: TAKE 200 MG IN THE AM, 200 MG AT NOON, 200 MG IN THE PM, AND 400 MG AT NIGHT
     Route: 048
     Dates: end: 20131105
  25. ZYLOPRIM [Concomitant]
     Indication: GOUT
     Dosage: 2 DF, QD
     Route: 048
     Dates: start: 20121017
  26. ASPIRIN [Concomitant]
     Indication: COAGULOPATHY
     Dosage: 81 MG, QD
  27. ASPIRIN [Concomitant]
     Indication: CARDIOVASCULAR EVENT PROPHYLAXIS
  28. LATISSE [Concomitant]
     Indication: GROWTH OF EYELASHES
     Dosage: APPLY 03 TIMES PER WEEK
  29. LATISSE [Concomitant]
     Dosage: UNK, APPLY ONE TIME DAILY
  30. SYNTHROID [Concomitant]
     Indication: THYROID DISORDER
     Dosage: 100 UG, QD
     Route: 048
     Dates: start: 20120229
  31. MEVACOR [Concomitant]
     Indication: BLOOD CHOLESTEROL
     Dosage: UNK, QD, TAKE 30 MG (1.5 TABS) AT BEDTIME
     Route: 048
     Dates: start: 20131024
  32. LUTEIN-ZEAXANTHIN [Concomitant]
     Indication: EYE DISORDER
     Dosage: 4 MG, QD
     Route: 048
     Dates: start: 20120130
  33. PROTONIX [Concomitant]
     Indication: GASTRIC ULCER
     Dosage: 1 DF, QD
     Route: 048
     Dates: start: 20101115, end: 20140328
  34. PROTONIX [Concomitant]
     Indication: DYSPEPSIA
  35. SODIUM BICARBONATE [Concomitant]
     Dosage: 2 TABLETS BY MOUTH 2 TIMES DAILY
     Route: 048
     Dates: start: 20121114, end: 20131105
  36. VITAMIN B6 [Concomitant]
     Dosage: UNK UKN, UNK
     Route: 048
  37. DIURETICS [Concomitant]
     Dosage: UNK UKN, UNK
  38. IMMUNOSUPPRESSANTS [Concomitant]
     Dosage: UNK UKN, UNK
  39. ANGIOTENSIN II ANTAGONISTS [Concomitant]
     Dosage: UNK UKN, UNK
  40. ARANESP [Concomitant]
     Indication: HAEMOGLOBIN ABNORMAL
     Dosage: 60 UG, UNDER SKIN EVERY 8 WEEKS
     Route: 058
     Dates: start: 20130723, end: 20131124
  41. NORVASC [Concomitant]
     Dosage: 10 MG, QD, AT BEDTIME
     Dates: start: 20120223, end: 20131124
  42. EDECRIN [Concomitant]
     Dosage: 25 MG, BID
     Route: 048
     Dates: start: 20130402, end: 20131105
  43. BENICAR [Concomitant]
     Dosage: 40 MG, QD
     Route: 048
     Dates: start: 20120523, end: 20131124
  44. DULCOLAX [Concomitant]
     Dosage: 1 DF, ONCE IN THE EVENING PRIOR TO DAY OF SURGERY
     Route: 054
     Dates: start: 20131120, end: 20131120
  45. TUMS [Concomitant]
     Dosage: 1 DF, QD
     Route: 048
     Dates: end: 20131105
  46. LUTEIN ZEAXANTHIN [Concomitant]
     Indication: EYE DISORDER
     Dosage: 4 MG, UNK
     Route: 048
  47. ESTRACE [Concomitant]
     Dosage: 0.1 MG/GM TWICE A WEEK
     Route: 067
     Dates: end: 20131105
  48. CLEOCIN [Concomitant]
     Indication: SKIN ULCER
     Dosage: 300 MG, BID
     Route: 048
     Dates: start: 20130625, end: 20131105
  49. CATAPRES//CLONIDINE [Concomitant]
     Dosage: 0.1 MG, EVERY 01 HOUR AS NEEDED
     Route: 048
     Dates: start: 20120229, end: 20131105
  50. SIMULECT [Concomitant]
     Dosage: UNK UKN, UNK

REACTIONS (41)
  - Foot fracture [Unknown]
  - Renal artery arteriosclerosis [Unknown]
  - Renal artery stenosis [Unknown]
  - Renal artery occlusion [Unknown]
  - Aortic arteriosclerosis [Unknown]
  - Labile hypertension [Unknown]
  - Pancreatic leak [Unknown]
  - Pleural effusion [Unknown]
  - Aphonia [Unknown]
  - Pelvic fluid collection [Unknown]
  - Renal atrophy [Unknown]
  - Mesenteric arteriosclerosis [Unknown]
  - Gout [Unknown]
  - Intestinal perforation [Unknown]
  - Complications of transplanted kidney [Unknown]
  - Renal failure chronic [Recovered/Resolved]
  - Urine output decreased [Unknown]
  - Chronic allograft nephropathy [Unknown]
  - Arteriosclerosis [Unknown]
  - Nephrosclerosis [Unknown]
  - Wound infection [Unknown]
  - Basal cell carcinoma [Unknown]
  - Urinary tract infection [Unknown]
  - Thyroid cancer [Unknown]
  - Thyroid neoplasm [Unknown]
  - Sinusitis [Unknown]
  - Pancreatitis [Unknown]
  - Peripancreatic fluid collection [Unknown]
  - Kidney fibrosis [Unknown]
  - Renal tubular atrophy [Unknown]
  - Bone disorder [Unknown]
  - Blood chloride increased [Unknown]
  - Memory impairment [Unknown]
  - Carbon dioxide decreased [Unknown]
  - Haemorrhoids [Unknown]
  - Beta 2 microglobulin increased [Unknown]
  - Diverticulum intestinal [Unknown]
  - Hyperlipidaemia [Unknown]
  - Blood magnesium decreased [Recovered/Resolved]
  - Haemoglobin decreased [Unknown]
  - Drug interaction [Unknown]
